FAERS Safety Report 10094664 (Version 1)
Quarter: 2014Q2

REPORT INFORMATION
  Report Type: Spontaneous
  Country: US (occurrence: None)
  Receive Date: 20140418
  Receipt Date: 20140418
  Transmission Date: 20141212
  Serious: Yes (Hospitalization, Other)
  Sender: FDA-Public Use
  Company Number: 2014P1002674

PATIENT
  Sex: Female

DRUGS (1)
  1. IRBESARTAN TABLETS USP 300 MG [Suspect]

REACTIONS (2)
  - Blood pressure increased [None]
  - Dyspepsia [None]
